FAERS Safety Report 4715968-3 (Version None)
Quarter: 2005Q3

REPORT INFORMATION
  Report Type: 
  Country: None (occurrence: None)
  Receive Date: 20050718
  Receipt Date: 20050315
  Transmission Date: 20060218
  Serious: Yes (Disabling, Other)
  Sender: FDA-Public Use
  Company Number: US-MERCK-0503USA03190

PATIENT
  Age: 48 Year
  Sex: Female
  Weight: 63 kg

DRUGS (3)
  1. VIOXX [Suspect]
     Indication: FIBROMYALGIA
     Route: 048
     Dates: start: 19990101, end: 20040101
  2. MOTRIN [Concomitant]
     Indication: PAIN
     Route: 065
     Dates: start: 20010101, end: 20050201
  3. MOTRIN [Concomitant]
     Indication: HEADACHE
     Route: 065
     Dates: start: 20010101, end: 20050201

REACTIONS (2)
  - ABDOMINAL PAIN UPPER [None]
  - CEREBROVASCULAR ACCIDENT [None]
